FAERS Safety Report 24588022 (Version 1)
Quarter: 2024Q4

REPORT INFORMATION
  Report Type: Spontaneous
  Country: US (occurrence: US)
  Receive Date: 20241107
  Receipt Date: 20241107
  Transmission Date: 20250114
  Serious: No
  Sender: INSMED
  Company Number: US-INSMED, INC.-2024-00808-US

PATIENT
  Age: 50 Year
  Sex: Male

DRUGS (1)
  1. ARIKAYCE [Suspect]
     Active Substance: AMIKACIN
     Indication: Mycobacterial infection
     Dosage: 590 MILLIGRAM, QD
     Route: 055
     Dates: start: 20230808, end: 202403

REACTIONS (7)
  - Ear discomfort [Not Recovered/Not Resolved]
  - Abdominal pain upper [Not Recovered/Not Resolved]
  - Upper-airway cough syndrome [Unknown]
  - Tinnitus [Not Recovered/Not Resolved]
  - Diarrhoea [Not Recovered/Not Resolved]
  - Productive cough [Unknown]
  - Hypoacusis [Unknown]

NARRATIVE: CASE EVENT DATE: 20240301
